FAERS Safety Report 5075718-0 (Version None)
Quarter: 2006Q3

REPORT INFORMATION
  Report Type: 
  Country: None (occurrence: None)
  Receive Date: 20060809
  Receipt Date: 20050223
  Transmission Date: 20061208
  Serious: Yes (Death, Other)
  Sender: FDA-Public Use
  Company Number: GB-BRISTOL-MYERS SQUIBB COMPANY-12874954

PATIENT
  Age: 16 Year
  Sex: Female

DRUGS (6)
  1. ABILIFY [Interacting]
     Indication: SCHIZOPHRENIA
     Route: 048
     Dates: start: 20041124, end: 20050107
  2. ANTIHYPERTENSIVE [Interacting]
  3. ALCOHOL [Interacting]
  4. CHLORPROMAZINE [Suspect]
     Indication: SCHIZOPHRENIA
     Dosage: 100 MG; THEN 150 MG 24-NOV-04 TO 07-JAN-05
     Route: 048
     Dates: start: 20040910, end: 20050107
  5. ATENOLOL [Concomitant]
  6. PROCYCLIDINE HYDROCHLORIDE 2MG TAB [Concomitant]
     Indication: AKATHISIA
     Route: 048
     Dates: start: 20040929, end: 20041027

REACTIONS (5)
  - AGITATION [None]
  - ALCOHOL USE [None]
  - DROWNING [None]
  - DRUG INEFFECTIVE [None]
  - DRUG INTERACTION [None]
